FAERS Safety Report 8352081-0 (Version None)
Quarter: 2012Q2

REPORT INFORMATION
  Report Type: 
  Country: None (occurrence: None)
  Receive Date: 20120511
  Receipt Date: 20120509
  Transmission Date: 20120825
  Serious: Yes (Death, Hospitalization)
  Sender: FDA-Public Use
  Company Number: JP-BAYER-2011-049365

PATIENT
  Age: 65 Year
  Sex: Male
  Weight: 51 kg

DRUGS (14)
  1. SORAFENIB (RAF KINASE INHIBITOR) [Suspect]
     Indication: HEPATIC NEOPLASM MALIGNANT
     Dosage: 800 MG DAILY
     Route: 048
     Dates: start: 20100908, end: 20110116
  2. SORAFENIB (RAF KINASE INHIBITOR) [Suspect]
     Dosage: 400 MG DAILY
     Route: 048
     Dates: start: 20110117, end: 20110130
  3. NEOPHAGEN-1 [Concomitant]
     Dosage: DAILY DOSE 6 DF
     Route: 048
  4. AMINOVACT [Concomitant]
     Dosage: DAILY DOSE 14.22 G
     Route: 048
  5. BARACLUDE [Concomitant]
     Dosage: DAILY DOSE .5 MG
     Route: 048
  6. HIRUDOID [Concomitant]
     Dosage: UNK
     Route: 061
     Dates: start: 20100914
  7. PROMAC [POLAPREZINC] [Concomitant]
     Dosage: DAILY DOSE 150 MG
     Route: 048
  8. URDESTON [Concomitant]
     Dosage: DAILY DOSE 600 MG
     Route: 048
  9. RANITAC [Concomitant]
     Dosage: DAILY DOSE 300 MG
     Route: 048
  10. AMINOLEBAN EN [Concomitant]
     Dosage: DAILY DOSE 50 G
     Route: 048
  11. MENATETRENONE [Concomitant]
     Dosage: DAILY DOSE 45 MG
     Route: 048
  12. FUROSEMIDE [Concomitant]
     Dosage: DAILY DOSE 20 MG
     Route: 048
  13. SPIRONOLACTONE [Concomitant]
     Dosage: DAILY DOSE 75 MG
     Route: 048
  14. KERATINAMIN [Concomitant]
     Dosage: UNK
     Route: 061
     Dates: start: 20100907

REACTIONS (10)
  - SKIN EXFOLIATION [None]
  - LIPASE INCREASED [None]
  - HEPATIC FUNCTION ABNORMAL [None]
  - PALMAR-PLANTAR ERYTHRODYSAESTHESIA SYNDROME [None]
  - ALOPECIA [None]
  - HEPATIC NEOPLASM MALIGNANT [None]
  - DIARRHOEA [None]
  - RASH [None]
  - AMYLASE INCREASED [None]
  - DYSPHONIA [None]
